FAERS Safety Report 9342425 (Version 3)
Quarter: 2013Q4

REPORT INFORMATION
  Report Type: Report from Study
  Country: ES (occurrence: ES)
  Receive Date: 20130611
  Receipt Date: 20131206
  Transmission Date: 20140711
  Serious: Yes (Hospitalization)
  Sender: FDA-Public Use
  Company Number: ES-ROCHE-1229931

PATIENT
  Age: 57 Year
  Sex: Female
  Weight: 103 kg

DRUGS (12)
  1. TRASTUZUMAB [Suspect]
     Indication: HER-2 POSITIVE BREAST CANCER
     Dosage: LOADING DOSE
     Route: 042
     Dates: start: 20130326
  2. TRASTUZUMAB [Suspect]
     Dosage: LAST DOSE PRIOR TO SAE: 07/MAY/2013:  THERAPY WAS TEMPORARILY INTERRUPTED.
     Route: 042
     Dates: end: 20130528
  3. TRASTUZUMAB [Suspect]
     Route: 042
     Dates: start: 20130604
  4. PACLITAXEL [Suspect]
     Indication: HER-2 POSITIVE BREAST CANCER
     Dosage: LAST DOSE PRIOR TO SAE: 21/MAY/2013:  THERAPY WAS TEMPORARILY INTERRUPTED.
     Route: 042
     Dates: start: 20130326, end: 20130528
  5. PACLITAXEL [Suspect]
     Route: 042
     Dates: start: 20130604
  6. AUGMENTIN [Concomitant]
     Route: 065
     Dates: start: 201305, end: 201305
  7. SEGURIL [Concomitant]
     Route: 065
  8. IBUPROFEN [Concomitant]
     Route: 065
  9. METFORMIN [Concomitant]
     Route: 065
  10. DAFLON (SPAIN) [Concomitant]
     Route: 065
  11. PERTUZUMAB [Suspect]
     Indication: HER-2 POSITIVE BREAST CANCER
     Dosage: LOADING DOSE
     Route: 065
     Dates: start: 20130326
  12. PERTUZUMAB [Suspect]
     Dosage: LAST DOSE PRIOR TO SAE: 07/MAY/2013: THERAPY WAS TEMPORARILY INTERRUPTED.
     Route: 065
     Dates: start: 20130326

REACTIONS (1)
  - Breast abscess [Recovered/Resolved]
